FAERS Safety Report 14217405 (Version 2)
Quarter: 2017Q4

REPORT INFORMATION
  Report Type: Spontaneous
  Country: IL (occurrence: IL)
  Receive Date: 20171123
  Receipt Date: 20171206
  Transmission Date: 20180321
  Serious: Yes (Other)
  Sender: FDA-Public Use
  Company Number: IL-ROCHE-2027289

PATIENT
  Age: 60 Year
  Sex: Female

DRUGS (1)
  1. XOLAIR [Suspect]
     Active Substance: OMALIZUMAB
     Indication: CHRONIC SPONTANEOUS URTICARIA
     Route: 065
     Dates: start: 20171002, end: 20171102

REACTIONS (15)
  - Pruritus [Unknown]
  - Respiratory distress [Unknown]
  - Hyperventilation [Unknown]
  - Urticaria [Unknown]
  - Mouth swelling [Unknown]
  - Swollen tongue [Unknown]
  - Angioedema [Recovered/Resolved]
  - Flushing [Unknown]
  - Dyspnoea [Unknown]
  - Oropharyngeal oedema [Unknown]
  - Skin swelling [Unknown]
  - Respiratory failure [Unknown]
  - Erythema [Unknown]
  - Anaphylactic shock [Recovered/Resolved]
  - Rash [Unknown]

NARRATIVE: CASE EVENT DATE: 20171102
